FAERS Safety Report 7830247-3 (Version None)
Quarter: 2011Q4

REPORT INFORMATION
  Report Type: 
  Country: None (occurrence: None)
  Receive Date: 20111021
  Receipt Date: 20110928
  Transmission Date: 20120403
  Serious: Yes (Hospitalization)
  Sender: FDA-Public Use
  Company Number: NL-SANOFI-AVENTIS-2011SA068680

PATIENT
  Age: 49 Year
  Sex: Male

DRUGS (4)
  1. ALCOHOL [Concomitant]
  2. THIAMINE HCL [Concomitant]
  3. ACETAMINOPHEN [Concomitant]
  4. DDAVP [Suspect]
     Route: 065

REACTIONS (3)
  - HYPONATRAEMIA [None]
  - HYPOKALAEMIA [None]
  - DYSARTHRIA [None]
